FAERS Safety Report 24569440 (Version 1)
Quarter: 2024Q4

REPORT INFORMATION
  Report Type: Report from Study
  Country: AR (occurrence: AR)
  Receive Date: 20241031
  Receipt Date: 20241031
  Transmission Date: 20250115
  Serious: Yes (Hospitalization, Other)
  Sender: UCB
  Company Number: AR-UCBSA-2024055950

PATIENT
  Age: 91 Year
  Sex: Male

DRUGS (1)
  1. ROTIGOTINE [Suspect]
     Active Substance: ROTIGOTINE
     Indication: Parkinson^s disease
     Dosage: 6 MILLIGRAM, ONCE DAILY (QD), (1 PER 24 HOURS)
     Route: 062
     Dates: start: 20240911, end: 20241015

REACTIONS (3)
  - Metastases to lung [Not Recovered/Not Resolved]
  - Bronchospasm [Not Recovered/Not Resolved]
  - Off label use [Unknown]

NARRATIVE: CASE EVENT DATE: 20240911
